FAERS Safety Report 10052404 (Version 2)
Quarter: 2014Q2

REPORT INFORMATION
  Report Type: Spontaneous
  Country: US (occurrence: US)
  Receive Date: 20140402
  Receipt Date: 20140501
  Transmission Date: 20141212
  Serious: Yes (Death)
  Sender: FDA-Public Use
  Company Number: US-CELGENEUS-163-21660-14034115

PATIENT
  Age: 61 Year
  Sex: Male

DRUGS (1)
  1. ABRAXANE [Suspect]
     Indication: PRODUCT USED FOR UNKNOWN INDICATION
     Route: 065

REACTIONS (3)
  - Oesophageal carcinoma [Fatal]
  - Cardiac failure [Fatal]
  - Sepsis [Fatal]
